FAERS Safety Report 10852925 (Version 1)
Quarter: 2015Q1

REPORT INFORMATION
  Report Type: Spontaneous
  Country: US (occurrence: US)
  Receive Date: 20150223
  Receipt Date: 20150223
  Transmission Date: 20150721
  Serious: Yes (Other)
  Sender: FDA-Public Use
  Company Number: US-AMGEN-USASP2015014873

PATIENT

DRUGS (4)
  1. NEULASTA [Suspect]
     Active Substance: PEGFILGRASTIM
     Indication: PRODUCT USED FOR UNKNOWN INDICATION
     Dosage: UNK
     Route: 065
  2. HERCEPTIN [Concomitant]
     Active Substance: TRASTUZUMAB
     Indication: INFLAMMATORY CARCINOMA OF BREAST STAGE III
     Dosage: UNK
     Dates: start: 20130905
  3. CARBOPLATIN. [Concomitant]
     Active Substance: CARBOPLATIN
     Indication: INFLAMMATORY CARCINOMA OF BREAST STAGE III
     Dosage: UNK, EVERY THREE WEEKS FOR 6 ROUNDS
     Dates: start: 20130905
  4. TAXOTERE [Concomitant]
     Active Substance: DOCETAXEL
     Indication: INFLAMMATORY CARCINOMA OF BREAST STAGE III
     Dosage: UNK, EVERY THREE WEEKS FOR 6 ROUNDS
     Dates: start: 20130905

REACTIONS (3)
  - Fatigue [Unknown]
  - Surgery [Unknown]
  - Bone pain [Unknown]
